FAERS Safety Report 6435674-7 (Version None)
Quarter: 2009Q4

REPORT INFORMATION
  Report Type: 
  Country: None (occurrence: None)
  Receive Date: 20091111
  Receipt Date: 20091030
  Transmission Date: 20100525
  Serious: Yes (Other)
  Sender: FDA-Public Use
  Company Number: PHHY2009JP35202

PATIENT
  Sex: Female
  Weight: 51 kg

DRUGS (11)
  1. AMN107 AMN+CAP [Suspect]
     Indication: CHRONIC MYELOID LEUKAEMIA
     Dosage: 800 MG DAILY
     Route: 048
     Dates: start: 20090409, end: 20090511
  2. AMN107 AMN+CAP [Suspect]
     Dosage: 400 MG DAILY
     Route: 048
     Dates: start: 20090522, end: 20090701
  3. ALLELOCK [Concomitant]
     Route: 048
  4. LANSOPRAZOLE [Concomitant]
  5. RIFATAC L [Concomitant]
     Route: 048
  6. URSO 250 [Concomitant]
     Route: 048
  7. HERBESSOR R [Concomitant]
     Route: 048
  8. METHYCOBAL [Concomitant]
     Route: 048
  9. LENDORMIN [Concomitant]
     Route: 048
  10. DAI-KENCHO-TO [Concomitant]
     Route: 048
  11. BIOFERMIN [Concomitant]
     Route: 048

REACTIONS (4)
  - BLOOD BILIRUBIN INCREASED [None]
  - CHEST DISCOMFORT [None]
  - LIPASE INCREASED [None]
  - PERICARDIAL EFFUSION [None]
